FAERS Safety Report 24127626 (Version 1)
Quarter: 2024Q3

REPORT INFORMATION
  Report Type: Report from Study
  Country: US (occurrence: US)
  Receive Date: 20240723
  Receipt Date: 20240723
  Transmission Date: 20241017
  Serious: No
  Sender: VANDA PHARMACEUTICALS
  Company Number: US-VANDA PHARMACEUTICALS, INC-2023TASUS006847

PATIENT
  Age: 48 Year
  Sex: Female

DRUGS (16)
  1. HETLIOZ [Suspect]
     Active Substance: TASIMELTEON
     Indication: Non-24-hour sleep-wake disorder
     Dosage: 20 MILLIGRAM, QHS, TAKE 1 CAPSULE BY MOUTH DAILY 1 HOUR BEFORE BEDTIME AT THE SAME TIME EVERY NIGHT
     Route: 048
     Dates: start: 20230118, end: 20230501
  2. XANAX [Concomitant]
     Active Substance: ALPRAZOLAM
     Indication: Product used for unknown indication
     Dosage: 0.5 MILLIGRAM, BID, TAKE HALF A TABLET (0.5 MG) BY MOUTH 2 TIMES PER DAY
     Route: 048
  3. DEXTROAMPHET SACCHARAT, AMPHET ASPARTATE, DEXTROAMPHET SULFATE AND AMP [Concomitant]
     Active Substance: AMPHETAMINE ASPARTATE\AMPHETAMINE SULFATE\DEXTROAMPHETAMINE SACCHARATE\DEXTROAMPHETAMINE SULFATE
     Indication: Product used for unknown indication
     Dosage: 20 MILLIGRAM, QD  (IN AM)
     Route: 048
     Dates: start: 20230210, end: 20230501
  4. DEXTROAMPHET SACCHARAT, AMPHET ASPARTATE, DEXTROAMPHET SULFATE AND AMP [Concomitant]
     Active Substance: AMPHETAMINE ASPARTATE\AMPHETAMINE SULFATE\DEXTROAMPHETAMINE SACCHARATE\DEXTROAMPHETAMINE SULFATE
     Dosage: 15 MILLIGRAM, BID, TAKE 1 CAPSULE (15 MG) BY MOUTH BID
     Route: 048
     Dates: start: 20230315, end: 20230405
  5. DEXTROAMPHET SACCHARAT, AMPHET ASPARTATE, DEXTROAMPHET SULFATE AND AMP [Concomitant]
     Active Substance: AMPHETAMINE ASPARTATE\AMPHETAMINE SULFATE\DEXTROAMPHETAMINE SACCHARATE\DEXTROAMPHETAMINE SULFATE
     Dosage: 15 MILLIGRAM, QD (IN THE MORNING)
     Route: 048
     Dates: start: 20230501
  6. CLONAZEPAM [Concomitant]
     Active Substance: CLONAZEPAM
     Indication: Product used for unknown indication
     Dosage: 0.5 MILLIGRAM, BID, TAKE 1 TABLET (0.5 MG) BY MOUTH 2 TIMES PER DAY
     Route: 048
     Dates: start: 20230118
  7. CYANOCOBALAMIN [Concomitant]
     Active Substance: CYANOCOBALAMIN
     Indication: Product used for unknown indication
     Dosage: 1 MILLIGRAM, INJECT 1ML SQ, Q MONTHLY
     Route: 058
  8. VIVITROL [Concomitant]
     Active Substance: NALTREXONE
     Indication: Product used for unknown indication
     Dosage: 380 MILLIGRAM,EVERY 4 WEEKS
     Route: 030
  9. VIVITROL [Concomitant]
     Active Substance: NALTREXONE
     Dosage: 50 MILLIGRAM, QD
     Route: 048
     Dates: start: 20230501, end: 2023
  10. ONDANSETRON [Concomitant]
     Active Substance: ONDANSETRON
     Indication: Nausea
     Dosage: 8 MILLIGRAM, Q8H, PLACE 1 TABLET (8 MG) ON THE TONGUE AND ALLOW TO DISSOLVE EVERY 8 HOURS AS NEEDED
     Route: 048
     Dates: start: 20230710
  11. ONDANSETRON [Concomitant]
     Active Substance: ONDANSETRON
     Indication: Vomiting
  12. PROTONIX [Concomitant]
     Active Substance: PANTOPRAZOLE SODIUM
     Indication: Product used for unknown indication
     Dosage: 40 MILLIGRAM, QD, TAKE 1 TABLET (40 MG) BY MOUTH DAILY
     Route: 048
  13. SERTRALINE HYDROCHLORIDE [Concomitant]
     Active Substance: SERTRALINE HYDROCHLORIDE
     Indication: Product used for unknown indication
     Dosage: 150 MG QD
     Route: 048
  14. SUMATRIPTAN SUCCINATE [Concomitant]
     Active Substance: SUMATRIPTAN SUCCINATE
     Indication: Product used for unknown indication
     Dosage: 50 MILLIGRAM, BID (AT LEAST 2 HOURS BETWEEN DOSES) PRN
     Route: 048
  15. TRAZODONE HCL [Concomitant]
     Active Substance: TRAZODONE HYDROCHLORIDE
     Indication: Product used for unknown indication
     Dosage: 100 MILLIGRAM, QHS
     Route: 048
  16. LUNESTA [Concomitant]
     Active Substance: ESZOPICLONE
     Indication: Product used for unknown indication
     Dosage: 2 MILLIGRAM, QHS, TAKE 1 TABLET (2 MG) BY MOUTH DAILY IMMEDIATELY BEFORE BEDTIME
     Route: 048
     Dates: end: 20230501

REACTIONS (1)
  - Drug ineffective [Unknown]

NARRATIVE: CASE EVENT DATE: 20230412
